FAERS Safety Report 24104984 (Version 3)
Quarter: 2024Q4

REPORT INFORMATION
  Report Type: Spontaneous
  Country: DE (occurrence: DE)
  Receive Date: 20240717
  Receipt Date: 20241007
  Transmission Date: 20250115
  Serious: Yes (Death, Life-Threatening, Hospitalization, Other)
  Sender: PFIZER
  Company Number: DE-DCGMA-24203605

PATIENT
  Age: 85 Year
  Sex: Female

DRUGS (12)
  1. METHOTREXATE SODIUM [Suspect]
     Active Substance: METHOTREXATE SODIUM
     Indication: Polymyalgia rheumatica
     Dosage: 15 MG, WEEKLY
     Route: 048
  2. METHOTREXATE SODIUM [Suspect]
     Active Substance: METHOTREXATE SODIUM
     Dosage: DAILY INSTEAD OF 1 X WEEKLY INTAKE
  3. AMLODIPINE [Concomitant]
     Active Substance: AMLODIPINE BESYLATE
     Dosage: 5 MG, 1X/DAY
     Route: 048
  4. ATORVASTATIN [Concomitant]
     Active Substance: ATORVASTATIN
     Dosage: 10 MG, 1X/DAY
     Route: 048
  5. CALCIMED [CALCIUM ASCORBATE] [Concomitant]
     Dosage: 500 MG, 1X/DAY
     Route: 048
  6. CHOLECALCIFEROL [Concomitant]
     Active Substance: CHOLECALCIFEROL
     Dosage: 20000 IU, WEEKLY
     Route: 048
  7. PIPAMPERONE [Concomitant]
     Active Substance: PIPAMPERONE
     Dosage: 20 MG, 1X/DAY
     Route: 048
  8. FOLIC ACID [Concomitant]
     Active Substance: FOLIC ACID
     Dosage: 5 MG, WEEKLY
     Route: 048
  9. INSULIN GLARGINE [Concomitant]
     Active Substance: INSULIN GLARGINE
     Dosage: 7 IU, 1X/DAY
     Route: 058
  10. ACTRAPID [Concomitant]
     Active Substance: INSULIN HUMAN
     Dosage: AS NEEDED - ACCORDING TO BLOOD SUGAR
     Route: 058
  11. PANTOPRAZOLE [Concomitant]
     Active Substance: PANTOPRAZOLE
     Dosage: 40 MG, 1X/DAY
     Route: 048
  12. TORSEMIDE [Concomitant]
     Active Substance: TORSEMIDE
     Dosage: 2.5 MG, 1X/DAY
     Route: 048

REACTIONS (11)
  - Sepsis [Fatal]
  - Acute kidney injury [Fatal]
  - Neutropenia [Fatal]
  - Toxicity to various agents [Fatal]
  - Pancytopenia [Fatal]
  - Disturbance in attention [Unknown]
  - Hepatic enzyme increased [Unknown]
  - Agranulocytosis [Unknown]
  - Pulmonary oedema [Unknown]
  - Mucosal haemorrhage [Unknown]
  - Inappropriate schedule of product administration [Unknown]

NARRATIVE: CASE EVENT DATE: 20240621
